FAERS Safety Report 16412447 (Version 6)
Quarter: 2019Q4

REPORT INFORMATION
  Report Type: Spontaneous
  Country: TW (occurrence: TW)
  Receive Date: 20190610
  Receipt Date: 20191029
  Transmission Date: 20200122
  Serious: Yes (Hospitalization, Other)
  Sender: FDA-Public Use
  Company Number: TW-ABBVIE-19K-153-2811217-00

PATIENT
  Age: 68 Year
  Sex: Female
  Weight: 60.1 kg

DRUGS (7)
  1. PREDNISOLONE. [Concomitant]
     Active Substance: PREDNISOLONE
     Indication: RHEUMATOID ARTHRITIS
     Dates: start: 20180721
  2. HUMIRA [Suspect]
     Active Substance: ADALIMUMAB
     Route: 058
     Dates: start: 20190119, end: 20190215
  3. HYDROXYCHLOROQUINE [Concomitant]
     Active Substance: HYDROXYCHLOROQUINE
     Indication: RHEUMATOID ARTHRITIS
     Dates: start: 20190109
  4. ULSAFE [Concomitant]
     Indication: GASTROOESOPHAGEAL REFLUX DISEASE
     Dates: start: 20190109
  5. CORTISONE [Concomitant]
     Active Substance: CORTISONE
     Indication: PNEUMOCYSTIS JIROVECII PNEUMONIA
     Dates: start: 20180508
  6. HUMIRA [Suspect]
     Active Substance: ADALIMUMAB
     Indication: RHEUMATOID ARTHRITIS
     Route: 058
     Dates: start: 20171216, end: 20180502
  7. HUMIRA [Suspect]
     Active Substance: ADALIMUMAB
     Route: 058
     Dates: start: 20180811, end: 20181220

REACTIONS (12)
  - Acute kidney injury [Unknown]
  - Pneumocystis jirovecii pneumonia [Unknown]
  - C-reactive protein increased [Unknown]
  - Pneumonia [Unknown]
  - Bronchopulmonary aspergillosis [Recovering/Resolving]
  - Leukocytosis [Unknown]
  - Intervertebral disc degeneration [Unknown]
  - Asthenia [Unknown]
  - Chronic kidney disease [Unknown]
  - Back pain [Unknown]
  - Pneumonia [Unknown]
  - Hypoaesthesia [Unknown]

NARRATIVE: CASE EVENT DATE: 20180613
